FAERS Safety Report 21974063 (Version 1)
Quarter: 2023Q1

REPORT INFORMATION
  Report Type: Other
  Country: US (occurrence: None)
  Receive Date: 20230209
  Receipt Date: 20230209
  Transmission Date: 20230418
  Serious: No
  Sender: FDA-Public Use
  Company Number: US-ROCHE-3281012

PATIENT
  Age: 75 Year
  Sex: Female
  Weight: 62.652 kg

DRUGS (4)
  1. OCREVUS [Suspect]
     Active Substance: OCRELIZUMAB
     Indication: Multiple sclerosis
     Route: 042
     Dates: start: 2021
  2. LYRICA [Concomitant]
     Active Substance: PREGABALIN
  3. LISINOPRIL [Concomitant]
     Active Substance: LISINOPRIL
  4. LOVASTATIN [Concomitant]
     Active Substance: LOVASTATIN

REACTIONS (2)
  - Illness [Recovered/Resolved]
  - Influenza [Recovered/Resolved]
